FAERS Safety Report 9298087 (Version 1)
Quarter: 2012Q4

REPORT INFORMATION
  Report Type: Spontaneous
  Country: US (occurrence: None)
  Receive Date: 20121022
  Receipt Date: 20121022
  Transmission Date: 20130627
  Serious: Yes (Hospitalization)
  Sender: FDA-Public Use
  Company Number: 2011AP000854

PATIENT
  Age: 3 Year
  Sex: Male

DRUGS (1)
  1. ALBUTEROL SULFATE INHALATION SOLUTION [Suspect]
     Indication: BRONCHOPULMONARY DYSPLASIA

REACTIONS (6)
  - Hypokalaemia [None]
  - Gait disturbance [None]
  - Muscular weakness [None]
  - Blood creatine phosphokinase increased [None]
  - Hypertonia [None]
  - Dropped head syndrome [None]
